FAERS Safety Report 5068257-4 (Version None)
Quarter: 2006Q3

REPORT INFORMATION
  Report Type: 
  Country: None (occurrence: None)
  Receive Date: 20060802
  Receipt Date: 20050628
  Transmission Date: 20061208
  Serious: Yes (Life-Threatening, Other)
  Sender: FDA-Public Use
  Company Number: US-BRISTOL-MYERS SQUIBB COMPANY-13017793

PATIENT
  Age: 47 Year
  Sex: Female
  Weight: 64 kg

DRUGS (11)
  1. COUMADIN [Suspect]
     Indication: DEEP VEIN THROMBOSIS
     Dosage: VARYING DOSES; STOPPED SEVERAL DAYS, THEN RESTART 5MG DAILY; DISCONTINUED 6/28/05 UNTIL 7/1/05
     Route: 048
     Dates: start: 20030801
  2. ALAVERT [Concomitant]
     Dosage: 10 TABLET DISPERSE; AS NEEDED
     Route: 048
  3. BUSPAR [Concomitant]
     Route: 048
     Dates: start: 20050726
  4. CLORAZEPATE DIPOTASSIUM [Concomitant]
     Indication: INSOMNIA
     Dates: start: 20050823
  5. CLORAZEPATE DIPOTASSIUM [Concomitant]
     Indication: ANXIETY
     Dates: start: 20050823
  6. DARVOCET [Concomitant]
     Indication: PAIN
     Route: 048
     Dates: start: 20050718
  7. FISH OIL [Concomitant]
     Route: 048
  8. SKELAXIN [Concomitant]
     Indication: MUSCLE SPASMS
     Route: 048
  9. ACETAMINOPHEN [Concomitant]
     Dosage: AS NEEDED
     Route: 048
  10. VALIUM [Concomitant]
     Indication: MUSCLE SPASMS
     Route: 048
     Dates: start: 20050729
  11. VIACTIV [Concomitant]

REACTIONS (2)
  - INTERNATIONAL NORMALISED RATIO FLUCTUATION [None]
  - PROTHROMBIN TIME ABNORMAL [None]
